FAERS Safety Report 16336840 (Version 1)
Quarter: 2019Q2

REPORT INFORMATION
  Report Type: Spontaneous
  Country: US (occurrence: US)
  Receive Date: 20190415
  Receipt Date: 20190415
  Transmission Date: 20190711
  Serious: No
  Sender: FDA-Public Use
  Company Number: None

PATIENT
  Age: 58 Year
  Sex: Female

DRUGS (4)
  1. SIMVASTATIN. [Concomitant]
     Active Substance: SIMVASTATIN
  2. ENBREL [Suspect]
     Active Substance: ETANERCEPT
     Dates: start: 201901
  3. TRADJENTA [Concomitant]
     Active Substance: LINAGLIPTIN
  4. LISINOPRIL. [Concomitant]
     Active Substance: LISINOPRIL

REACTIONS (2)
  - Feeling hot [None]
  - Rash macular [None]

NARRATIVE: CASE EVENT DATE: 20190201
